FAERS Safety Report 9050363 (Version 3)
Quarter: 2013Q2

REPORT INFORMATION
  Report Type: Report from Study
  Country: US (occurrence: US)
  Receive Date: 20130205
  Receipt Date: 20130416
  Transmission Date: 20140414
  Serious: Yes (Other)
  Sender: FDA-Public Use
  Company Number: US-VERTEX PHARMACEUTICALS INC.-2013-001496

PATIENT
  Age: 59 Year
  Sex: Female
  Weight: 63 kg

DRUGS (9)
  1. VX-950 (TELAPREVIR) [Suspect]
     Indication: HEPATITIS C
     Dosage: 750 MG, TID
     Route: 048
     Dates: start: 20121109, end: 20130201
  2. PEGASYS [Suspect]
     Indication: HEPATITIS C
     Dosage: 180 ?G, QW
     Route: 058
     Dates: start: 20121109
  3. RIBASPHERE [Suspect]
     Indication: HEPATITIS C
     Dosage: 600 MG, BID
     Route: 048
     Dates: start: 20121109
  4. RIBASPHERE [Suspect]
     Dosage: 400 MG,  BID
     Route: 048
     Dates: start: 201302
  5. ONDANSETRON HCL [Concomitant]
     Dosage: 4 MG, PRN
  6. MAXALT [Concomitant]
     Dosage: 10 MG, UNK
  7. TYLENOL [Concomitant]
     Dosage: 325 MG, UNK
  8. VITAMIN E [Concomitant]
     Dosage: 200 UT, UNK
  9. CALCIUM 600 PLUS VITAMIN D3 [Concomitant]
     Dosage: 600-200 MG

REACTIONS (11)
  - Anaemia [Recovered/Resolved]
  - Aphthous stomatitis [Recovered/Resolved]
  - Oropharyngeal pain [Not Recovered/Not Resolved]
  - Dysphagia [Not Recovered/Not Resolved]
  - Gastrooesophageal reflux disease [Recovered/Resolved]
  - Dry mouth [Not Recovered/Not Resolved]
  - Blood potassium decreased [Unknown]
  - Swelling face [Not Recovered/Not Resolved]
  - Rash papular [Recovered/Resolved]
  - Vomiting [Recovered/Resolved]
  - Nausea [Recovered/Resolved]
